FAERS Safety Report 6431806-5 (Version None)
Quarter: 2009Q4

REPORT INFORMATION
  Report Type: 
  Country: None (occurrence: None)
  Receive Date: 20091104
  Receipt Date: 20091029
  Transmission Date: 20100525
  Serious: Yes (Death, Hospitalization)
  Sender: FDA-Public Use
  Company Number: 2009AL006885

PATIENT
  Age: 50 Year
  Sex: Female

DRUGS (8)
  1. PROPYLTHIOURACIL TAB [Suspect]
     Indication: BASEDOW'S DISEASE
  2. SILDENAFIL [Concomitant]
  3. BOSENTAN [Concomitant]
  4. ILOPROST [Concomitant]
  5. IMATINIB [Concomitant]
  6. DIURETICS [Concomitant]
  7. ANTICOAGULANTS [Concomitant]
  8. EPOPROSTENOL [Concomitant]

REACTIONS (9)
  - CARDIAC DISORDER [None]
  - CARDIOMEGALY [None]
  - DEVICE RELATED INFECTION [None]
  - DILATATION VENTRICULAR [None]
  - GENERAL PHYSICAL HEALTH DETERIORATION [None]
  - HEPATIC NECROSIS [None]
  - HEPATITIS TOXIC [None]
  - LUNG NEOPLASM [None]
  - RIGHT VENTRICULAR HYPERTROPHY [None]
